FAERS Safety Report 20871701 (Version 3)
Quarter: 2022Q2

REPORT INFORMATION
  Report Type: Report from Study
  Country: AT (occurrence: AT)
  Receive Date: 20220525
  Receipt Date: 20220627
  Transmission Date: 20220721
  Serious: Yes (Other)
  Sender: FDA-Public Use
  Company Number: AT-GILEAD-2022-0581692

PATIENT
  Age: 49 Year
  Sex: Female

DRUGS (7)
  1. TENOFOVIR DISOPROXIL [Suspect]
     Active Substance: TENOFOVIR DISOPROXIL
     Indication: Hepatitis B
     Dosage: 245 MILLIGRAM (245 MG)
     Route: 065
     Dates: start: 2016
  2. BULEVIRTIDE [Suspect]
     Active Substance: BULEVIRTIDE
     Indication: Hepatitis B
     Dosage: UNK
     Route: 058
     Dates: start: 2020
  3. BULEVIRTIDE [Suspect]
     Active Substance: BULEVIRTIDE
     Indication: Hepatitis D
     Dosage: UNK
     Route: 065
     Dates: start: 202103
  4. PEGYLATED INTERFERON ALPHA NOS [Suspect]
     Active Substance: PEGINTERFERON ALFA-2A OR PEGINTERFERON ALFA-2B
     Indication: Hepatitis D
     Dosage: UNK
     Route: 065
     Dates: start: 2016, end: 202103
  5. PEGYLATED INTERFERON ALPHA NOS [Suspect]
     Active Substance: PEGINTERFERON ALFA-2A OR PEGINTERFERON ALFA-2B
     Dosage: UNK, REDUCED DOSE
     Route: 065
     Dates: start: 2019
  6. CARVEDILOL [Concomitant]
     Active Substance: CARVEDILOL
     Indication: Hepatic cirrhosis
     Dosage: 6.25 MILLIGRAM (6.25 MG, UNK)
     Route: 065
     Dates: start: 2016
  7. SPIRONOLACTONE [Concomitant]
     Active Substance: SPIRONOLACTONE
     Indication: Hepatic cirrhosis
     Dosage: 100 MILLIGRAM (100 MG, UNK)
     Route: 065
     Dates: start: 2016

REACTIONS (9)
  - Thrombocytopenia [Unknown]
  - Pancytopenia [Recovered/Resolved]
  - Influenza like illness [Recovered/Resolved]
  - Viral load increased [Recovered/Resolved]
  - Viral infection [Recovered/Resolved]
  - Total bile acids increased [Not Recovered/Not Resolved]
  - Transaminases increased [Recovered/Resolved]
  - Fatigue [Recovered/Resolved]
  - Asthenia [Recovered/Resolved]

NARRATIVE: CASE EVENT DATE: 20210406
